FAERS Safety Report 5643098-5 (Version None)
Quarter: 2008Q1

REPORT INFORMATION
  Report Type: 
  Country: None (occurrence: None)
  Receive Date: 20080227
  Receipt Date: 20080227
  Transmission Date: 20080703
  Serious: Yes (Other)
  Sender: FDA-Public Use
  Company Number: None

PATIENT
  Age: 36 Year
  Sex: Female
  Weight: 85.2762 kg

DRUGS (3)
  1. ZYPREXA [Suspect]
     Indication: BIPOLAR II DISORDER
     Dosage: 1/2 TABLET Q AM PO
     Route: 048
     Dates: start: 20080101, end: 20080222
  2. ZYPREXA [Suspect]
     Dosage: 1 TABLET Q PM PO
     Route: 048
  3. LAMICTAL [Concomitant]

REACTIONS (3)
  - JOINT SWELLING [None]
  - MENTAL IMPAIRMENT [None]
  - WEIGHT INCREASED [None]
